FAERS Safety Report 9411701 (Version 1)
Quarter: 2013Q3

REPORT INFORMATION
  Report Type: Spontaneous
  Country: DK (occurrence: DK)
  Receive Date: 20130722
  Receipt Date: 20130722
  Transmission Date: 20140515
  Serious: Yes (Life-Threatening)
  Sender: FDA-Public Use
  Company Number: DK-JNJFOC-20130708209

PATIENT
  Age: 84 Year
  Sex: Female

DRUGS (2)
  1. XARELTO [Suspect]
     Indication: DEEP VEIN THROMBOSIS
     Route: 048
     Dates: start: 20130617, end: 20130626
  2. INSULATARD INSULIN [Concomitant]
     Indication: TYPE 2 DIABETES MELLITUS
     Route: 065

REACTIONS (4)
  - Renal failure [Not Recovered/Not Resolved]
  - Azotaemia [Not Recovered/Not Resolved]
  - Lethargy [Not Recovered/Not Resolved]
  - General physical health deterioration [Not Recovered/Not Resolved]
